FAERS Safety Report 4937698-5 (Version None)
Quarter: 2006Q1

REPORT INFORMATION
  Report Type: 
  Country: None (occurrence: None)
  Receive Date: 20060308
  Receipt Date: 20060308
  Transmission Date: 20060701
  Serious: Yes (Disabling)
  Sender: FDA-Public Use
  Company Number: None

PATIENT
  Age: 50 Year
  Sex: Female
  Weight: 80.7403 kg

DRUGS (2)
  1. TOPROL-XL [Suspect]
     Indication: BLOOD PRESSURE MANAGEMENT
     Dosage: 50 MG 1 DAILY MOUTH
     Route: 048
     Dates: start: 20060131
  2. LISINOPRIL [Suspect]
     Indication: BLOOD PRESSURE MANAGEMENT
     Dosage: 10 MG  1 DAILY MOUTH
     Route: 048
     Dates: start: 20060218

REACTIONS (3)
  - EYE INFLAMMATION [None]
  - OCULAR HYPERAEMIA [None]
  - VISION BLURRED [None]
